FAERS Safety Report 10439617 (Version 1)
Quarter: 2014Q3

REPORT INFORMATION
  Report Type: Spontaneous
  Country: BR (occurrence: BR)
  Receive Date: 20140908
  Receipt Date: 20140908
  Transmission Date: 20150326
  Serious: Yes (Other)
  Sender: FDA-Public Use
  Company Number: BR-PFIZER INC-2014244774

PATIENT
  Age: 66 Year
  Sex: Female

DRUGS (1)
  1. LYRICA [Suspect]
     Active Substance: PREGABALIN
     Indication: MYALGIA
     Dosage: UNSPECIFIED DOSE, 3X/DAY
     Route: 048
     Dates: start: 2012, end: 2012

REACTIONS (2)
  - Dizziness [Unknown]
  - Infarction [Unknown]

NARRATIVE: CASE EVENT DATE: 2012
